FAERS Safety Report 5488142-3 (Version None)
Quarter: 2007Q4

REPORT INFORMATION
  Report Type: 
  Country: None (occurrence: None)
  Receive Date: 20071017
  Receipt Date: 20071009
  Transmission Date: 20080405
  Serious: Yes (Other)
  Sender: FDA-Public Use
  Company Number: BR-AVENTIS-200719388GDDC

PATIENT
  Age: 30 Year
  Sex: Male
  Weight: 89 kg

DRUGS (1)
  1. FLAGYL [Suspect]
     Indication: GIARDIASIS
     Dosage: DOSE: 1 TABLET
     Route: 048
     Dates: start: 20071008, end: 20071008

REACTIONS (6)
  - ANGIOEDEMA [None]
  - DYSPHAGIA [None]
  - ERYTHEMA [None]
  - FEELING HOT [None]
  - PRURITUS [None]
  - RASH [None]
